FAERS Safety Report 7218843-8 (Version None)
Quarter: 2011Q1

REPORT INFORMATION
  Report Type: 
  Country: None (occurrence: None)
  Receive Date: 20110110
  Receipt Date: 20101230
  Transmission Date: 20110831
  Serious: No
  Sender: FDA-Public Use
  Company Number: US-PFIZER INC-2011001311

PATIENT
  Age: 57 Year
  Sex: Male
  Weight: 99.773 kg

DRUGS (1)
  1. ADVIL PM [Suspect]
     Dosage: 2 CAPLETS, 1X/DAY
     Route: 048
     Dates: start: 20101229, end: 20101229

REACTIONS (1)
  - DRUG INEFFECTIVE [None]
